APPROVED DRUG PRODUCT: DEFERASIROX
Active Ingredient: DEFERASIROX
Strength: 360MG
Dosage Form/Route: TABLET;ORAL
Application: A211852 | Product #002
Applicant: CIPLA LTD
Approved: Feb 11, 2020 | RLD: No | RS: No | Type: DISCN